FAERS Safety Report 4826182-5 (Version None)
Quarter: 2005Q4

REPORT INFORMATION
  Report Type: 
  Country: None (occurrence: None)
  Receive Date: 20051014
  Receipt Date: 20050718
  Transmission Date: 20060501
  Serious: No
  Sender: FDA-Public Use
  Company Number: 2005SP001931

PATIENT
  Age: 50 Year
  Sex: Female
  Weight: 54.4316 kg

DRUGS (3)
  1. LUNESTA [Suspect]
     Indication: INSOMNIA
     Dosage: 1.5 MG;HS; ORAL
     Route: 048
     Dates: start: 20050717, end: 20050717
  2. SEROQUEL [Suspect]
     Dosage: 175 MG ; HS ; ORAL
     Route: 048
  3. KLONOPIN [Concomitant]

REACTIONS (3)
  - DISORIENTATION [None]
  - HALLUCINATION [None]
  - SOMNOLENCE [None]
